FAERS Safety Report 6340229-9 (Version None)
Quarter: 2009Q3

REPORT INFORMATION
  Report Type: 
  Country: None (occurrence: None)
  Receive Date: 20090902
  Receipt Date: 20090828
  Transmission Date: 20100115
  Serious: Yes (Other)
  Sender: FDA-Public Use
  Company Number: 2009SP015048

PATIENT
  Age: 37 Year
  Sex: Female

DRUGS (4)
  1. CLARITIN-D 24 HOUR [Suspect]
     Indication: MULTIPLE ALLERGIES
     Dosage: 10 MG; ONCE; PO
     Route: 048
     Dates: start: 20090704, end: 20090704
  2. CLARITIN-D 24 HOUR [Suspect]
     Indication: PULMONARY CONGESTION
     Dosage: 10 MG; ONCE; PO
     Route: 048
     Dates: start: 20090704, end: 20090704
  3. CLARITIN-D 24 HOUR [Suspect]
     Indication: RHINORRHOEA
     Dosage: 10 MG; ONCE; PO
     Route: 048
     Dates: start: 20090704, end: 20090704
  4. ORTHO TRI-CYCLEN LO [Concomitant]

REACTIONS (5)
  - DIZZINESS [None]
  - DYSPNOEA [None]
  - HEARING IMPAIRED [None]
  - LOSS OF CONSCIOUSNESS [None]
  - PALPITATIONS [None]
